FAERS Safety Report 18049646 (Version 1)
Quarter: 2020Q3

REPORT INFORMATION
  Report Type: Spontaneous
  Country: US (occurrence: US)
  Receive Date: 20200721
  Receipt Date: 20200721
  Transmission Date: 20201103
  Serious: Yes (Other)
  Sender: FDA-Public Use
  Company Number: US-BOIRON INC.-2020BOR00159

PATIENT
  Sex: Male

DRUGS (1)
  1. CAMILIA [Suspect]
     Active Substance: HOMEOPATHICS
     Indication: PRODUCT USED FOR UNKNOWN INDICATION

REACTIONS (5)
  - Unresponsive to stimuli [Recovered/Resolved]
  - Screaming [Unknown]
  - Fear [Unknown]
  - Respiratory arrest [Recovered/Resolved]
  - Abnormal behaviour [Unknown]
